FAERS Safety Report 7997784-2 (Version None)
Quarter: 2011Q4

REPORT INFORMATION
  Report Type: 
  Country: None (occurrence: None)
  Receive Date: 20111221
  Receipt Date: 20110720
  Transmission Date: 20120403
  Serious: No
  Sender: FDA-Public Use
  Company Number: US-PFIZER INC-K201100873

PATIENT
  Age: 75 Year
  Sex: Female

DRUGS (2)
  1. CORGARD [Suspect]
     Indication: HYPERTENSION
     Dosage: UNK
     Route: 048
  2. LORAZEPAM [Concomitant]
     Dosage: UNK

REACTIONS (1)
  - DRUG INEFFECTIVE [None]
